FAERS Safety Report 8357496-2 (Version None)
Quarter: 2012Q2

REPORT INFORMATION
  Report Type: 
  Country: None (occurrence: None)
  Receive Date: 20120510
  Receipt Date: 20120503
  Transmission Date: 20120825
  Serious: Yes (Death)
  Sender: FDA-Public Use
  Company Number: 2012SP023622

PATIENT
  Age: 71 Year
  Sex: Female

DRUGS (10)
  1. LOVENOX [Suspect]
     Indication: DENTAL CARE
     Dosage: 4000 IU;BID;SC
     Route: 058
     Dates: start: 20120304, end: 20120319
  2. PERINDOPRIL ERBUMINE [Concomitant]
  3. LASIX [Concomitant]
  4. POTASSIUM CHLORIDE [Concomitant]
  5. BISOPROLOL FUMARATE [Concomitant]
  6. LEVOTHYROXINE SODIUM [Concomitant]
  7. ORGARAN [Suspect]
     Indication: HEPARIN-INDUCED THROMBOCYTOPENIA
     Dosage: IV
     Route: 042
     Dates: start: 20120320, end: 20120323
  8. CORDARONE [Concomitant]
  9. FERROUS SULFATE TAB [Concomitant]
  10. ATARAX [Concomitant]

REACTIONS (10)
  - INJECTION SITE HAEMATOMA [None]
  - SHOCK HAEMORRHAGIC [None]
  - INTRA-ABDOMINAL HAEMATOMA [None]
  - INJECTION SITE PAIN [None]
  - BRONCHITIS [None]
  - SUBILEUS [None]
  - HYDRONEPHROSIS [None]
  - ABDOMINAL PAIN [None]
  - CARDIAC FAILURE [None]
  - RENAL FAILURE ACUTE [None]
